FAERS Safety Report 6762869-5 (Version None)
Quarter: 2010Q2

REPORT INFORMATION
  Report Type: 
  Country: None (occurrence: None)
  Receive Date: 20100609
  Receipt Date: 20091221
  Transmission Date: 20101027
  Serious: Yes (Other)
  Sender: FDA-Public Use
  Company Number: US-ASTRAZENECA-2009SE28108

PATIENT
  Age: 45 Year
  Sex: Male
  Weight: 77.1 kg

DRUGS (7)
  1. NEXIUM [Suspect]
     Route: 048
     Dates: start: 20090301
  2. PRILOSEC OTC [Suspect]
     Route: 048
  3. ADVAIR 25/50 [Concomitant]
     Indication: CHRONIC OBSTRUCTIVE PULMONARY DISEASE
  4. HYDROCODONE [Concomitant]
     Indication: PAIN
  5. GABAPENTIN [Concomitant]
     Indication: INFLAMMATION
  6. VENTOLIN DS [Concomitant]
     Indication: EMERGENCY CARE
  7. ROLAIDS [Concomitant]
     Dosage: 8-10 TABLETS/DAY

REACTIONS (3)
  - DRUG INEFFECTIVE [None]
  - ROAD TRAFFIC ACCIDENT [None]
  - SURGERY [None]
